FAERS Safety Report 4938910-9 (Version None)
Quarter: 2006Q1

REPORT INFORMATION
  Report Type: 
  Country: None (occurrence: None)
  Receive Date: 20060309
  Receipt Date: 20051005
  Transmission Date: 20060701
  Serious: Yes (Hospitalization)
  Sender: FDA-Public Use
  Company Number: US-MERCK-0510USA04009

PATIENT
  Age: 69 Year
  Sex: Female
  Weight: 82 kg

DRUGS (3)
  1. VIOXX [Suspect]
     Route: 048
     Dates: start: 20021001, end: 20031227
  2. DIOVAN [Concomitant]
     Route: 065
  3. DYAZIDE [Concomitant]
     Route: 065

REACTIONS (7)
  - ABDOMINAL PAIN LOWER [None]
  - CONSTIPATION [None]
  - DIARRHOEA [None]
  - GASTROINTESTINAL TRACT ADENOMA [None]
  - HAEMORRHOIDS [None]
  - MELANOSIS COLI [None]
  - SUBDURAL HAEMATOMA [None]
